FAERS Safety Report 6827610-6 (Version None)
Quarter: 2010Q3

REPORT INFORMATION
  Report Type: 
  Country: None (occurrence: None)
  Receive Date: 20100709
  Receipt Date: 20070118
  Transmission Date: 20110219
  Serious: No
  Sender: FDA-Public Use
  Company Number: US-PFIZER INC-2007005932

PATIENT
  Age: 54 Year
  Sex: Male
  Weight: 83.91 kg

DRUGS (3)
  1. CHANTIX [Suspect]
     Indication: SMOKING CESSATION THERAPY
     Dates: start: 20070118
  2. LEVAQUIN [Suspect]
     Indication: POSTOPERATIVE CARE
     Dates: start: 20070118, end: 20070118
  3. XANAX [Concomitant]
     Indication: POSTOPERATIVE CARE

REACTIONS (2)
  - ERYTHEMA [None]
  - SWELLING FACE [None]
